FAERS Safety Report 20348676 (Version 2)
Quarter: 2022Q1

REPORT INFORMATION
  Report Type: Spontaneous
  Country: GB (occurrence: GB)
  Receive Date: 20220119
  Receipt Date: 20220126
  Transmission Date: 20220423
  Serious: Yes (Other)
  Sender: FDA-Public Use
  Company Number: GB-CELLTRION INC.-2022GB000379

PATIENT

DRUGS (1)
  1. INFLIXIMAB [Suspect]
     Active Substance: INFLIXIMAB
     Indication: Product used for unknown indication
     Dosage: FORTNIGHTLY (REMSIMA SC 120MG PFS 2 CELL)
     Route: 058
     Dates: start: 20210105

REACTIONS (2)
  - COVID-19 [Unknown]
  - Treatment delayed [Unknown]
